FAERS Safety Report 7880749 (Version 5)
Quarter: 2014Q2

REPORT INFORMATION
  Report Type: Spontaneous
  Country: US (occurrence: US)
  Receive Date: 20110331
  Receipt Date: 20140425
  Transmission Date: 20141212
  Serious: Yes (Hospitalization)
  Sender: FDA-Public Use
  Company Number: US-BAYER-2011-027004

PATIENT
  Age: 21 Year
  Sex: Female
  Weight: 125 kg

DRUGS (14)
  1. YAZ [Suspect]
     Dosage: UNK
     Route: 048
     Dates: start: 2006, end: 2007
  2. LABETALOL [Concomitant]
     Dosage: UNK
     Dates: start: 2006, end: 2008
  3. IBUPROFEN [Concomitant]
     Dosage: UNK
     Route: 048
     Dates: start: 2003, end: 2010
  4. PRENATAL VITAMINS [Concomitant]
     Route: 048
  5. IRON SULFATE [Concomitant]
     Dosage: UNK
     Route: 048
     Dates: start: 20080716
  6. PERCOCET [Concomitant]
     Dosage: UNK
     Route: 048
     Dates: start: 20080728
  7. COLACE [Concomitant]
     Dosage: UNK
     Route: 048
     Dates: start: 20080728
  8. MICRONOR [Concomitant]
     Dosage: UNK
     Route: 048
     Dates: start: 20080728
  9. CLARITIN [Concomitant]
     Route: 048
  10. FIORICET [Concomitant]
     Dosage: UNK
     Route: 048
     Dates: start: 20080616
  11. AMPICILLIN [Concomitant]
     Dosage: 250 MG, UNK
     Route: 048
     Dates: start: 20080616
  12. MONISTAT [Concomitant]
  13. MACROBID [Concomitant]
     Dosage: 100 MG, UNK
     Route: 048
  14. TYLENOL [PARACETAMOL] [Concomitant]
     Route: 048

REACTIONS (11)
  - Bile duct stone [None]
  - Cholecystitis chronic [None]
  - Gallbladder disorder [None]
  - Pain [None]
  - Chromaturia [None]
  - Injury [None]
  - General physical health deterioration [None]
  - Coordination abnormal [None]
  - Anxiety [None]
  - Emotional distress [None]
  - Anhedonia [None]
